FAERS Safety Report 9685932 (Version 1)
Quarter: 2013Q4

REPORT INFORMATION
  Report Type: Spontaneous
  Country: US (occurrence: US)
  Receive Date: 20131113
  Receipt Date: 20131113
  Transmission Date: 20140711
  Serious: No
  Sender: FDA-Public Use
  Company Number: US-BAYER-2013-137290

PATIENT
  Age: 88 Year
  Sex: Female
  Weight: 54 kg

DRUGS (2)
  1. ALEVE CAPLET [Suspect]
     Indication: ARTHRITIS
     Dosage: 2 DF, PRN
     Route: 048
     Dates: start: 201306
  2. TYLENOL [PARACETAMOL] [Concomitant]

REACTIONS (2)
  - Off label use [None]
  - Drug ineffective [None]
